FAERS Safety Report 5185094-0 (Version None)
Quarter: 2006Q4

REPORT INFORMATION
  Report Type: 
  Country: None (occurrence: None)
  Receive Date: 20061220
  Receipt Date: 20061201
  Transmission Date: 20070319
  Serious: Yes (Other)
  Sender: FDA-Public Use
  Company Number: US-ROCHE-473846

PATIENT
  Sex: Female

DRUGS (2)
  1. ACCUTANE [Suspect]
     Dates: start: 19810615, end: 19820615
  2. ACCUTANE [Suspect]
     Dates: start: 19880615, end: 19880615

REACTIONS (3)
  - DRUG EXPOSURE DURING PREGNANCY [None]
  - NORMAL NEWBORN [None]
  - PLACENTA PRAEVIA [None]
